FAERS Safety Report 4707714-4 (Version None)
Quarter: 2005Q2

REPORT INFORMATION
  Report Type: 
  Country: None (occurrence: None)
  Receive Date: 20050629
  Receipt Date: 20050418
  Transmission Date: 20051028
  Serious: No
  Sender: FDA-Public Use
  Company Number: 05P-163-0297685-00

PATIENT
  Age: 61 Year
  Sex: Female
  Weight: 100 kg

DRUGS (14)
  1. HUMIRA [Suspect]
     Indication: RHEUMATOID ARTHRITIS
     Dosage: 40 MG, 1 IN 2 WK, SUBCUTANEOUS
     Route: 058
     Dates: start: 20040101
  2. FENOFIBRATE [Concomitant]
  3. LISINOPRIL [Concomitant]
  4. FUROSEMIDE [Concomitant]
  5. DIGOXIN [Concomitant]
  6. LEVOTHYROXINE SODIUM [Concomitant]
  7. CETIRIZINE HYDROCHLORIDE [Concomitant]
  8. METOPROLOL [Concomitant]
  9. CELECOXIB [Concomitant]
  10. NEUROTONIC [Concomitant]
  11. METFORMIN [Concomitant]
  12. SALBUTAMOL [Concomitant]
  13. SERETIDE MITE [Concomitant]
  14. CADIEN [Concomitant]

REACTIONS (1)
  - INJECTION SITE IRRITATION [None]
